FAERS Safety Report 17851101 (Version 1)
Quarter: 2020Q2

REPORT INFORMATION
  Report Type: Spontaneous
  Country: US (occurrence: US)
  Receive Date: 20200602
  Receipt Date: 20200602
  Transmission Date: 20200714
  Serious: No
  Sender: FDA-Public Use
  Company Number: US-FOUNDATIONCONSUMERHC-2019-US-021393

PATIENT
  Age: 38 Year
  Sex: Female
  Weight: 127.01 kg

DRUGS (2)
  1. PLAN B ONE-STEP [Suspect]
     Active Substance: LEVONORGESTREL
     Indication: POST COITAL CONTRACEPTION
     Dosage: 1.5 MG X 2 EACH INSTANCE X UNK NUMBER INSTANCES
     Route: 048
     Dates: start: 201905, end: 20191104
  2. VITAMIN [Concomitant]
     Active Substance: VITAMINS

REACTIONS (4)
  - Intentional product misuse [Recovered/Resolved]
  - Menstruation irregular [Not Recovered/Not Resolved]
  - Incorrect dosage administered [Recovered/Resolved]
  - Dysmenorrhoea [Not Recovered/Not Resolved]

NARRATIVE: CASE EVENT DATE: 201905
